FAERS Safety Report 5625037-6 (Version None)
Quarter: 2008Q1

REPORT INFORMATION
  Report Type: 
  Country: None (occurrence: None)
  Receive Date: 20080208
  Receipt Date: 20080123
  Transmission Date: 20080703
  Serious: Yes (Hospitalization)
  Sender: FDA-Public Use
  Company Number: DSA_31145_2008

PATIENT
  Sex: Male

DRUGS (6)
  1. LORAZEPAM [Suspect]
     Indication: DRUG USE FOR UNKNOWN INDICATION
     Dosage: 2 MG QD ORAL
     Route: 048
  2. VENLAFAXIINE HCL [Suspect]
     Indication: DRUG USE FOR UNKNOWN INDICATION
     Dosage: 300 MG QD ORAL
     Route: 048
  3. TREVILOR (TREVILOR RETARD - LITHIUM ACETATE) (NOT SPECIFIED) [Suspect]
     Dosage: 1500 MG 1X ORAL
     Route: 048
     Dates: start: 20071229, end: 20071229
  4. QUILONUM /00033703/ (QUILONUM) [Suspect]
     Indication: DRUG USE FOR UNKNOWN INDICATION
     Dosage: 900 MG QD ORAL
     Route: 048
  5. VENLAFAXINE HCL [Suspect]
  6. LITHIUM CARBONATE [Suspect]

REACTIONS (5)
  - BLOOD CREATINE PHOSPHOKINASE INCREASED [None]
  - FATIGUE [None]
  - MULTIPLE DRUG OVERDOSE INTENTIONAL [None]
  - POISONING [None]
  - SUICIDE ATTEMPT [None]
